FAERS Safety Report 19907740 (Version 1)
Quarter: 2021Q3

REPORT INFORMATION
  Report Type: Report from Study
  Country: CO (occurrence: CO)
  Receive Date: 20210930
  Receipt Date: 20210930
  Transmission Date: 20211014
  Serious: Yes (Other)
  Sender: FDA-Public Use
  Company Number: NVSC2021CO178991

PATIENT
  Sex: Female
  Weight: 62 kg

DRUGS (1)
  1. COSENTYX [Suspect]
     Active Substance: SECUKINUMAB
     Indication: ANKYLOSING SPONDYLITIS
     Dosage: 300 MG, QMO (5 YEARS AGO)
     Route: 058

REACTIONS (7)
  - Burning sensation [Not Recovered/Not Resolved]
  - Urinary tract infection [Not Recovered/Not Resolved]
  - Paralysis [Recovered/Resolved]
  - Dysuria [Not Recovered/Not Resolved]
  - Headache [Recovered/Resolved]
  - Osteoporosis [Unknown]
  - Urine odour abnormal [Not Recovered/Not Resolved]
